FAERS Safety Report 6969485-0 (Version None)
Quarter: 2010Q3

REPORT INFORMATION
  Report Type: 
  Country: None (occurrence: None)
  Receive Date: 20100902
  Receipt Date: 20100818
  Transmission Date: 20110219
  Serious: Yes (Hospitalization)
  Sender: FDA-Public Use
  Company Number: 2010003531

PATIENT
  Age: 49 Year
  Sex: Female

DRUGS (2)
  1. ERLOTINIB (ERLOTINIB) (TABLET) (ERLOTINIB) [Suspect]
     Indication: BREAST CANCER
     Dosage: (150 MG,QD),ORAL
     Route: 048
     Dates: start: 20100201, end: 20100707
  2. BENDAMUSTINE (BENDAMUSTINE) [Suspect]
     Indication: BREAST CANCER
     Dosage: (120 MG/M2),INTRAVENOUS
     Route: 042
     Dates: start: 20100128, end: 20100618

REACTIONS (8)
  - BLOOD SODIUM DECREASED [None]
  - BREAST CANCER METASTATIC [None]
  - BRONCHOPULMONARY ASPERGILLOSIS [None]
  - CLOSTRIDIUM TEST POSITIVE [None]
  - FEBRILE NEUTROPENIA [None]
  - LUNG NEOPLASM [None]
  - MALIGNANT NEOPLASM PROGRESSION [None]
  - MEAN PLATELET VOLUME DECREASED [None]
